FAERS Safety Report 4723423-X (Version None)
Quarter: 2005Q3

REPORT INFORMATION
  Report Type: 
  Country: None (occurrence: None)
  Receive Date: 20050721
  Receipt Date: 20050721
  Transmission Date: 20060218
  Serious: Yes (Hospitalization)
  Sender: FDA-Public Use
  Company Number: None

PATIENT
  Age: 69 Year
  Sex: Female

DRUGS (1)
  1. OXCARBAZEPINE 600 MG [Suspect]
     Dosage: 600 MG TWICE DAILY

REACTIONS (4)
  - CONFUSIONAL STATE [None]
  - HOSTILITY [None]
  - HYPONATRAEMIA [None]
  - MENTAL STATUS CHANGES [None]
